FAERS Safety Report 7199113-3 (Version None)
Quarter: 2010Q4

REPORT INFORMATION
  Report Type: 
  Country: None (occurrence: None)
  Receive Date: 20101126
  Receipt Date: 20100405
  Transmission Date: 20110411
  Serious: Yes (Other)
  Sender: FDA-Public Use
  Company Number: CIP10000756

PATIENT
  Age: 60 Year
  Sex: Female

DRUGS (4)
  1. ACTONEL [Suspect]
     Dosage: 150 MG ONCE MONTHLY, ORAL
     Route: 048
     Dates: start: 20100301, end: 20100401
  2. LIPITOR [Concomitant]
  3. CALCIUM W/VITAMIN D /00944201/ (CALCIUM CARBONATE, COLECALCIFEROL) [Concomitant]
  4. PREDNISONE TAB [Concomitant]

REACTIONS (6)
  - CHILLS [None]
  - DIARRHOEA [None]
  - GASTROINTESTINAL PAIN [None]
  - HEADACHE [None]
  - PYREXIA [None]
  - VOMITING [None]
